FAERS Safety Report 23028989 (Version 1)
Quarter: 2023Q4

REPORT INFORMATION
  Report Type: Spontaneous
  Country: DE (occurrence: None)
  Receive Date: 20231004
  Receipt Date: 20231004
  Transmission Date: 20240109
  Serious: Yes (Hospitalization, Other)
  Sender: FDA-Public Use
  Company Number: 2023A223279

PATIENT
  Age: 62 Year
  Sex: Male

DRUGS (7)
  1. DAPAGLIFLOZIN [Suspect]
     Active Substance: DAPAGLIFLOZIN
     Route: 048
  2. ASPIRIN [Concomitant]
     Active Substance: ASPIRIN
     Dosage: 100
  3. BISOPROLOL [Concomitant]
     Active Substance: BISOPROLOL\BISOPROLOL FUMARATE
     Dosage: 2.5
  4. ENTRESTO [Concomitant]
     Active Substance: SACUBITRIL\VALSARTAN
  5. EPLERENONE [Concomitant]
     Active Substance: EPLERENONE
     Dosage: 25
  6. DAPAGLIFLOZIN [Concomitant]
     Active Substance: DAPAGLIFLOZIN
     Dosage: 10
  7. EZETIMIBE\ROSUVASTATIN [Concomitant]
     Active Substance: EZETIMIBE\ROSUVASTATIN
     Dosage: 40/10

REACTIONS (15)
  - Ejection fraction decreased [Unknown]
  - Cardiac failure [Unknown]
  - Cardiopulmonary exercise test abnormal [Unknown]
  - Prohormone brain natriuretic peptide abnormal [Unknown]
  - Aortic aneurysm [Unknown]
  - Exercise electrocardiogram abnormal [Unknown]
  - Left ventricular dysfunction [Unknown]
  - Atrial enlargement [Unknown]
  - Diastolic dysfunction [Unknown]
  - Pulmonary hypertension [Unknown]
  - Left ventricular dilatation [Unknown]
  - Mitral valve disease mixed [Unknown]
  - Inferior vena cava stenosis [Unknown]
  - Pleural effusion [Unknown]
  - Tricuspid valve incompetence [Unknown]
